FAERS Safety Report 9961321 (Version 2)
Quarter: 2014Q1

REPORT INFORMATION
  Report Type: Spontaneous
  Country: CH (occurrence: CH)
  Receive Date: 20140305
  Receipt Date: 20140314
  Transmission Date: 20141002
  Serious: Yes (Hospitalization)
  Sender: FDA-Public Use
  Company Number: CH-JNJFOC-20140300083

PATIENT
  Age: 49 Year
  Sex: Male
  Weight: 141 kg

DRUGS (1)
  1. REMICADE [Suspect]
     Indication: ANKYLOSING SPONDYLITIS
     Route: 042
     Dates: start: 20080201, end: 20131203

REACTIONS (2)
  - Pneumonia legionella [Recovered/Resolved]
  - Sepsis [Unknown]
